FAERS Safety Report 7579384-1 (Version None)
Quarter: 2011Q2

REPORT INFORMATION
  Report Type: 
  Country: None (occurrence: None)
  Receive Date: 20110629
  Receipt Date: 20110621
  Transmission Date: 20111010
  Serious: Yes (Hospitalization)
  Sender: FDA-Public Use
  Company Number: US-BIOGENIDEC-2011BI017063

PATIENT
  Age: 48 Year
  Sex: Male

DRUGS (1)
  1. TYSABRI [Suspect]
     Indication: MULTIPLE SCLEROSIS
     Route: 042
     Dates: start: 20071211

REACTIONS (5)
  - RESPIRATORY TRACT CONGESTION [None]
  - PYREXIA [None]
  - CONFUSIONAL STATE [None]
  - NASOPHARYNGITIS [None]
  - URINARY TRACT INFECTION [None]
